FAERS Safety Report 8918419 (Version 1)
Quarter: 2012Q4

REPORT INFORMATION
  Report Type: 
  Country: US (occurrence: US)
  Receive Date: 20121120
  Receipt Date: 20121120
  Transmission Date: 20130627
  Serious: No
  Sender: FDA-Public Use
  Company Number: US-ASTRAZENECA-2012SE26754

PATIENT
  Sex: Female

DRUGS (5)
  1. NEXIUM [Suspect]
     Route: 048
  2. ACCOLATE [Suspect]
     Indication: ASTHMA
     Route: 048
  3. ACCOLATE [Suspect]
     Indication: CHRONIC OBSTRUCTIVE PULMONARY DISEASE
     Route: 048
  4. ACCOLATE [Suspect]
     Indication: EMPHYSEMA
     Route: 048
  5. ACCOLATE [Suspect]
     Indication: BRONCHITIS
     Route: 048

REACTIONS (3)
  - Dyspnoea [Unknown]
  - Off label use [Unknown]
  - Intentional drug misuse [Unknown]
